FAERS Safety Report 26134917 (Version 1)
Quarter: 2025Q4

REPORT INFORMATION
  Report Type: Spontaneous
  Country: CN (occurrence: CN)
  Receive Date: 20251209
  Receipt Date: 20251209
  Transmission Date: 20260117
  Serious: Yes (Life-Threatening, Other)
  Sender: GLAND PHARMA LTD
  Company Number: CN-GLANDPHARMA-CN-2025GLNLIT02117

PATIENT
  Age: 10 Year
  Sex: Female

DRUGS (9)
  1. CISPLATIN [Suspect]
     Active Substance: CISPLATIN
     Indication: Osteosarcoma
     Route: 065
     Dates: start: 202309, end: 202312
  2. CISPLATIN [Suspect]
     Active Substance: CISPLATIN
     Route: 065
     Dates: start: 202409, end: 202411
  3. CISPLATIN [Suspect]
     Active Substance: CISPLATIN
     Route: 065
     Dates: start: 202412, end: 202501
  4. CISPLATIN [Suspect]
     Active Substance: CISPLATIN
     Route: 065
     Dates: start: 202502
  5. CISPLATIN [Suspect]
     Active Substance: CISPLATIN
     Route: 065
     Dates: start: 202503
  6. PIRARUBICIN [Concomitant]
     Active Substance: PIRARUBICIN
     Indication: Osteosarcoma
     Route: 065
     Dates: start: 202309, end: 202312
  7. PIRARUBICIN [Concomitant]
     Active Substance: PIRARUBICIN
     Route: 065
     Dates: start: 202409, end: 202411
  8. EPIRUBICIN [Concomitant]
     Active Substance: EPIRUBICIN
     Indication: Osteosarcoma
     Route: 065
     Dates: start: 202412, end: 202501
  9. METHOTREXATE SODIUM [Concomitant]
     Active Substance: METHOTREXATE SODIUM
     Indication: Osteosarcoma
     Route: 065
     Dates: start: 202502

REACTIONS (4)
  - Myelosuppression [Recovered/Resolved]
  - Overdose [Unknown]
  - Product use issue [Unknown]
  - Product use in unapproved indication [Unknown]

NARRATIVE: CASE EVENT DATE: 20230901
